FAERS Safety Report 5731978-1 (Version None)
Quarter: 2008Q2

REPORT INFORMATION
  Report Type: 
  Country: None (occurrence: None)
  Receive Date: 20080508
  Receipt Date: 20080428
  Transmission Date: 20081010
  Serious: Yes (Hospitalization)
  Sender: FDA-Public Use
  Company Number: DE-ABBOTT-08P-062-0449823-00

PATIENT
  Age: 59 Year
  Sex: Female
  Weight: 58 kg

DRUGS (16)
  1. ZEMPLAR [Suspect]
     Indication: GLOMERULONEPHRITIS CHRONIC
     Route: 042
     Dates: start: 20060207, end: 20060207
  2. ZEMPLAR [Suspect]
     Route: 042
     Dates: start: 20060307, end: 20060411
  3. ZEMPLAR [Suspect]
     Route: 042
     Dates: start: 20060411, end: 20060520
  4. CA-ACETATE NEFRO [Concomitant]
     Indication: DRUG USE FOR UNKNOWN INDICATION
  5. ALUMINIUM CHLORHYDROXIDE-COMPLEX [Concomitant]
     Indication: DRUG USE FOR UNKNOWN INDICATION
     Dates: end: 20060216
  6. CALCITRIOL NEFRO [Concomitant]
     Indication: DRUG USE FOR UNKNOWN INDICATION
     Dates: end: 20060208
  7. OLMESARTAN MEDOXOMIL [Concomitant]
     Indication: DRUG USE FOR UNKNOWN INDICATION
     Dates: start: 20060128, end: 20060411
  8. OLMESARTAN MEDOXOMIL [Concomitant]
     Dates: start: 20060411
  9. BISOPROLOL FUMARATE [Concomitant]
     Indication: DRUG USE FOR UNKNOWN INDICATION
     Dates: start: 20050809
  10. NILVADIPINE [Concomitant]
     Indication: DRUG USE FOR UNKNOWN INDICATION
     Dates: start: 20050723
  11. MINOXIDIL [Concomitant]
     Indication: DRUG USE FOR UNKNOWN INDICATION
     Dates: start: 20050908
  12. PREDNISOLONE [Concomitant]
     Indication: DRUG USE FOR UNKNOWN INDICATION
     Dates: start: 20050506
  13. ESOMEPRAZOLE MAGNESIUM [Concomitant]
     Indication: DRUG USE FOR UNKNOWN INDICATION
     Dosage: MUPS
     Dates: start: 20050506
  14. SODIUM BICARBONATE [Concomitant]
     Indication: DRUG USE FOR UNKNOWN INDICATION
     Dates: start: 20050506
  15. DREISAVIT [Concomitant]
     Indication: DRUG USE FOR UNKNOWN INDICATION
     Dates: start: 20050913
  16. ATORVASTATIN CALCIUM [Concomitant]
     Indication: DRUG USE FOR UNKNOWN INDICATION
     Route: 048
     Dates: start: 20060412

REACTIONS (1)
  - RENAL TRANSPLANT [None]
